FAERS Safety Report 4354974-8 (Version None)
Quarter: 2004Q2

REPORT INFORMATION
  Report Type: 
  Country: None (occurrence: None)
  Receive Date: 20040504
  Receipt Date: 20040427
  Transmission Date: 20050107
  Serious: Yes (Hospitalization)
  Sender: FDA-Public Use
  Company Number: 2004209174US

PATIENT
  Age: 65 Year
  Sex: Female

DRUGS (1)
  1. BEXTRA [Suspect]
     Indication: OSTEOARTHRITIS
     Dosage: 20 MG QD ORAL
     Route: 048
     Dates: start: 20030401

REACTIONS (1)
  - STEVENS-JOHNSON SYNDROME [None]
